FAERS Safety Report 17364542 (Version 2)
Quarter: 2020Q2

REPORT INFORMATION
  Report Type: Spontaneous
  Country: CH (occurrence: CH)
  Receive Date: 20200204
  Receipt Date: 20200408
  Transmission Date: 20200713
  Serious: Yes (Other)
  Sender: FDA-Public Use
  Company Number: CH-AMGEN-CHESP2020018987

PATIENT
  Sex: Female

DRUGS (1)
  1. AIMOVIG [Suspect]
     Active Substance: ERENUMAB-AOOE
     Indication: PRODUCT USED FOR UNKNOWN INDICATION
     Dosage: 70 MILLIGRAM, QD
     Route: 065
     Dates: start: 20190829, end: 20191025

REACTIONS (5)
  - Gastritis [Unknown]
  - Abdominal pain lower [Unknown]
  - Faecaloma [Unknown]
  - Dysuria [Unknown]
  - Renal pain [Unknown]

NARRATIVE: CASE EVENT DATE: 20191101
